FAERS Safety Report 12414895 (Version 2)
Quarter: 2016Q2

REPORT INFORMATION
  Report Type: Spontaneous
  Country: FR (occurrence: FR)
  Receive Date: 20160529
  Receipt Date: 20160609
  Transmission Date: 20160815
  Serious: Yes (Other)
  Sender: FDA-Public Use
  Company Number: FR-BRISTOL-MYERS SQUIBB COMPANY-BMS-2016-014880

PATIENT
  Sex: Female

DRUGS (1)
  1. ELIQUIS [Suspect]
     Active Substance: APIXABAN
     Indication: CEREBROVASCULAR ACCIDENT PROPHYLAXIS
     Dosage: 2.5 MG, UNK
     Route: 065
     Dates: start: 20140603, end: 20160223

REACTIONS (3)
  - Haematoma [Recovered/Resolved]
  - Rotator cuff repair [Unknown]
  - Haemorrhage [Recovered/Resolved]
